FAERS Safety Report 14183903 (Version 2)
Quarter: 2017Q4

REPORT INFORMATION
  Report Type: Spontaneous
  Country: FR (occurrence: FR)
  Receive Date: 20171113
  Receipt Date: 20171115
  Transmission Date: 20180321
  Serious: Yes (Life-Threatening)
  Sender: FDA-Public Use
  Company Number: FR-ASTRAZENECA-2017SF15287

PATIENT
  Age: 20084 Day
  Sex: Male

DRUGS (12)
  1. BACLOFEN. [Suspect]
     Active Substance: BACLOFEN
     Dosage: 2 DF IN THE MORNING, 3 DF AT NOON AND 3 DF IN THE EVENING
     Route: 048
  2. XEROQUEL [Suspect]
     Active Substance: QUETIAPINE FUMARATE
     Dosage: 10.0DF ONCE/SINGLE ADMINISTRATION
     Route: 048
     Dates: start: 20170918, end: 20170918
  3. DIAZEPAM. [Suspect]
     Active Substance: DIAZEPAM
     Route: 048
  4. ZOLOFT [Suspect]
     Active Substance: SERTRALINE HYDROCHLORIDE
     Route: 048
  5. ALCOHOL. [Suspect]
     Active Substance: ALCOHOL
     Route: 048
     Dates: start: 20170918, end: 20170918
  6. XEROQUEL [Suspect]
     Active Substance: QUETIAPINE FUMARATE
     Route: 048
  7. ZOLOFT [Suspect]
     Active Substance: SERTRALINE HYDROCHLORIDE
     Dosage: 14.0DF ONCE/SINGLE ADMINISTRATION
     Route: 048
     Dates: start: 20170918, end: 20170918
  8. BROMAZEPAM [Suspect]
     Active Substance: BROMAZEPAM
     Dosage: 126.0MG ONCE/SINGLE ADMINISTRATION
     Route: 048
     Dates: start: 20170918, end: 20170918
  9. BACLOFEN. [Suspect]
     Active Substance: BACLOFEN
     Dosage: 100.0MG ONCE/SINGLE ADMINISTRATION
     Route: 048
     Dates: start: 20170918, end: 20170918
  10. ZOPICLONE [Suspect]
     Active Substance: ZOPICLONE
     Route: 048
  11. ZOPICLONE [Suspect]
     Active Substance: ZOPICLONE
     Dosage: 105.0MG ONCE/SINGLE ADMINISTRATION
     Route: 048
     Dates: start: 20170918, end: 20170918
  12. DIAZEPAM. [Suspect]
     Active Substance: DIAZEPAM
     Dosage: 140.0MG ONCE/SINGLE ADMINISTRATION
     Route: 048
     Dates: start: 20170918, end: 20170918

REACTIONS (3)
  - Pneumonia aspiration [Recovered/Resolved]
  - Coma [Recovered/Resolved]
  - Poisoning deliberate [Recovered/Resolved with Sequelae]

NARRATIVE: CASE EVENT DATE: 20170918
